FAERS Safety Report 21480321 (Version 1)
Quarter: 2022Q4

REPORT INFORMATION
  Report Type: Report from Study
  Country: DE (occurrence: DE)
  Receive Date: 20221019
  Receipt Date: 20221019
  Transmission Date: 20230113
  Serious: Yes (Other)
  Sender: FDA-Public Use
  Company Number: DE-BRISTOL-MYERS SQUIBB COMPANY-BMS-2019-022533

PATIENT
  Age: 20 Year
  Sex: Male

DRUGS (7)
  1. DASATINIB [Suspect]
     Active Substance: DASATINIB
     Indication: Chronic myeloid leukaemia
     Dosage: 100 MILLIGRAM, FILM-COATED TABLET
     Route: 065
     Dates: start: 20171113, end: 20171222
  2. DASATINIB [Suspect]
     Active Substance: DASATINIB
     Dosage: 100 MILLIGRAM, QD (FILM-COATED TABLET)
     Route: 065
     Dates: start: 20210318, end: 20220819
  3. CYTARABINE [Suspect]
     Active Substance: CYTARABINE
     Indication: Product used for unknown indication
     Dosage: 40 MILLIGRAM
     Route: 065
  4. HYDROXYUREA [Suspect]
     Active Substance: HYDROXYUREA
     Indication: Chronic myeloid leukaemia
     Dosage: 500 MILLIGRAM
     Route: 065
     Dates: start: 20171108, end: 20171116
  5. HYDROXYUREA [Suspect]
     Active Substance: HYDROXYUREA
     Dosage: 500 MILLIGRAM
     Route: 065
     Dates: start: 20171117, end: 20171118
  6. HYDROXYUREA [Suspect]
     Active Substance: HYDROXYUREA
     Dosage: 500 MILLIGRAM
     Route: 065
     Dates: start: 20171118, end: 20171119
  7. HYDROXYUREA [Suspect]
     Active Substance: HYDROXYUREA
     Dosage: 500 MILLIGRAM
     Route: 065
     Dates: start: 20171120, end: 20171121

REACTIONS (4)
  - Anaemia [Recovered/Resolved]
  - Leukopenia [Recovered/Resolved]
  - Thrombocytopenia [Recovered/Resolved]
  - Weight increased [Not Recovered/Not Resolved]
